FAERS Safety Report 5064977-6 (Version None)
Quarter: 2006Q3

REPORT INFORMATION
  Report Type: 
  Country: None (occurrence: None)
  Receive Date: 20060728
  Receipt Date: 20060726
  Transmission Date: 20061208
  Serious: Yes (Life-Threatening, Hospitalization)
  Sender: FDA-Public Use
  Company Number: JP-BOEHRINGER INGELHEIM PHARMACEUTICALS, INC.-2006-BP-08630NB

PATIENT
  Age: 91 Year
  Sex: Male

DRUGS (2)
  1. MOBIC [Suspect]
     Indication: BACK PAIN
     Route: 048
     Dates: start: 20060624, end: 20060627
  2. YAKUBAN [Concomitant]
     Route: 062

REACTIONS (3)
  - HEPATITIS FULMINANT [None]
  - RENAL FAILURE [None]
  - SICK SINUS SYNDROME [None]
